FAERS Safety Report 13090231 (Version 2)
Quarter: 2017Q1

REPORT INFORMATION
  Report Type: Spontaneous
  Country: US (occurrence: US)
  Receive Date: 20170105
  Receipt Date: 20170120
  Transmission Date: 20170428
  Serious: Yes (Hospitalization)
  Sender: FDA-Public Use
  Company Number: US-LUNDBECK-DKLU2024668

PATIENT
  Age: 82 Year
  Sex: Male

DRUGS (1)
  1. NORTHERA [Suspect]
     Active Substance: DROXIDOPA
     Indication: AUTONOMIC NEUROPATHY
     Route: 048
     Dates: start: 20160417

REACTIONS (2)
  - Post procedural infection [Recovered/Resolved]
  - Skin erosion [Recovered/Resolved]

NARRATIVE: CASE EVENT DATE: 20160615
